FAERS Safety Report 4627438-1 (Version None)
Quarter: 2005Q2

REPORT INFORMATION
  Report Type: 
  Country: None (occurrence: None)
  Receive Date: 20050405
  Receipt Date: 20050331
  Transmission Date: 20051028
  Serious: Yes (Death)
  Sender: FDA-Public Use
  Company Number: MY-MERCK-0504MYS00001

PATIENT
  Age: 30 Year

DRUGS (3)
  1. INVANZ [Suspect]
     Route: 042
     Dates: start: 20050301, end: 20050301
  2. CIPROFLOXACIN HYDROCHLORIDE [Concomitant]
     Route: 065
  3. [THERAPY UNSPECIFIED] [Concomitant]
     Route: 065

REACTIONS (1)
  - DEATH [None]
